FAERS Safety Report 14205285 (Version 1)
Quarter: 2017Q4

REPORT INFORMATION
  Report Type: Report from Study
  Country: GB (occurrence: GB)
  Receive Date: 20171120
  Receipt Date: 20171120
  Transmission Date: 20180321
  Serious: Yes (Other)
  Sender: FDA-Public Use
  Company Number: GB-JNJFOC-20171118559

PATIENT
  Sex: Female

DRUGS (1)
  1. STELARA [Suspect]
     Active Substance: USTEKINUMAB
     Indication: PSORIASIS
     Route: 058

REACTIONS (6)
  - Skin ulcer [Not Recovered/Not Resolved]
  - Psoriasis [Unknown]
  - Intestinal resection [Unknown]
  - Infection [Unknown]
  - Rectal haemorrhage [Unknown]
  - Proctitis [Unknown]
